FAERS Safety Report 7273189-7 (Version None)
Quarter: 2010Q4

REPORT INFORMATION
  Report Type: 
  Country: None (occurrence: None)
  Receive Date: 20101201
  Receipt Date: 20100507
  Transmission Date: 20110411
  Serious: Yes (Other)
  Sender: FDA-Public Use
  Company Number: 308271

PATIENT
  Age: 63 Year
  Sex: Male
  Weight: 63.5 kg

DRUGS (1)
  1. NOVOLOG [Suspect]
     Indication: TYPE 1 DIABETES MELLITUS
     Dosage: SLIDING SCALE, QD, SUBCUTANEOUS
     Route: 058
     Dates: start: 20050101

REACTIONS (1)
  - HYPOGLYCAEMIC UNCONSCIOUSNESS [None]
